FAERS Safety Report 23465154 (Version 1)
Quarter: 2024Q1

REPORT INFORMATION
  Report Type: Spontaneous
  Country: GR (occurrence: GR)
  Receive Date: 20240201
  Receipt Date: 20240201
  Transmission Date: 20240410
  Serious: Yes (Hospitalization)
  Sender: FDA-Public Use
  Company Number: GR-ELI_LILLY_AND_COMPANY-GR202401012713

PATIENT
  Age: 85 Year
  Sex: Male

DRUGS (4)
  1. HUMULIN R [Suspect]
     Active Substance: INSULIN HUMAN
     Indication: Diabetes mellitus
     Dosage: 7 INTERNATIONAL UNIT, DAILY
     Route: 058
  2. HUMULIN R [Suspect]
     Active Substance: INSULIN HUMAN
     Dosage: 7 INTERNATIONAL UNIT, DAILY
     Route: 058
     Dates: end: 20240110
  3. LANTUS [Concomitant]
     Active Substance: INSULIN GLARGINE
     Indication: Diabetes mellitus
     Dosage: 8 INTERNATIONAL UNIT, DAILY
  4. ELIQUIS [Concomitant]
     Active Substance: APIXABAN
     Indication: Coagulopathy
     Dosage: UNK

REACTIONS (3)
  - Haematocrit decreased [Unknown]
  - Expired product administered [Unknown]
  - Hypoglycaemia [Recovered/Resolved]

NARRATIVE: CASE EVENT DATE: 20231201
